FAERS Safety Report 16041313 (Version 2)
Quarter: 2019Q4

REPORT INFORMATION
  Report Type: Spontaneous
  Country: JP (occurrence: JP)
  Receive Date: 20190306
  Receipt Date: 20191226
  Transmission Date: 20200122
  Serious: Yes (Other)
  Sender: FDA-Public Use
  Company Number: JP-ROCHE-2273681

PATIENT
  Age: 78 Year
  Sex: Female

DRUGS (1)
  1. XOLAIR [Suspect]
     Active Substance: OMALIZUMAB
     Indication: ASTHMA
     Route: 058
     Dates: start: 201204, end: 201907

REACTIONS (4)
  - Chronic obstructive pulmonary disease [Unknown]
  - Therapeutic response decreased [Unknown]
  - Lung neoplasm malignant [Unknown]
  - Asthma [Unknown]
